FAERS Safety Report 18969364 (Version 2)
Quarter: 2021Q1

REPORT INFORMATION
  Report Type: Spontaneous
  Country: IT (occurrence: IT)
  Receive Date: 20210304
  Receipt Date: 20210308
  Transmission Date: 20210420
  Serious: Yes (Other)
  Sender: FDA-Public Use
  Company Number: PHHY2009IT32899

PATIENT
  Age: 54 Year
  Sex: Male

DRUGS (2)
  1. IMATINIB. [Suspect]
     Active Substance: IMATINIB MESYLATE
     Indication: GASTROINTESTINAL STROMAL TUMOUR
     Dosage: 400 MG, QID
     Route: 048
  2. IMATINIB. [Suspect]
     Active Substance: IMATINIB MESYLATE
     Dosage: 400 MG, QD, PER DAY
     Route: 048

REACTIONS (4)
  - Gastrointestinal stromal tumour [Unknown]
  - Proctitis [Recovering/Resolving]
  - Therapy responder [Unknown]
  - Neutropenia [Recovering/Resolving]
